FAERS Safety Report 14529564 (Version 1)
Quarter: 2018Q1

REPORT INFORMATION
  Report Type: Spontaneous
  Country: JP (occurrence: JP)
  Receive Date: 20180214
  Receipt Date: 20180214
  Transmission Date: 20180509
  Serious: Yes (Hospitalization, Other)
  Sender: FDA-Public Use
  Company Number: JP-VIIV HEALTHCARE LIMITED-JP2017JPN057058

PATIENT
  Age: 75 Year
  Sex: Female
  Weight: 30 kg

DRUGS (10)
  1. BENAMBAX [Suspect]
     Active Substance: PENTAMIDINE
     Indication: PNEUMOCYSTIS JIROVECII PNEUMONIA
     Dosage: 130 MG, QD
     Route: 042
     Dates: start: 20170502, end: 20170512
  2. MINOMYCIN [Concomitant]
     Active Substance: MINOCYCLINE HYDROCHLORIDE
     Dosage: UNK
  3. TIVICAY [Suspect]
     Active Substance: DOLUTEGRAVIR SODIUM
     Indication: HIV INFECTION
     Dosage: 1 DF, 1D
     Route: 048
     Dates: start: 20170425
  4. BENAMBAX [Suspect]
     Active Substance: PENTAMIDINE
     Indication: PROPHYLAXIS
     Dosage: 130 MG, 1D
     Route: 030
     Dates: start: 20170513, end: 20170513
  5. DAIPHEN [Concomitant]
     Active Substance: SULFAMETHOXAZOLE\TRIMETHOPRIM
     Dosage: 4 G, 1D
     Dates: start: 20170330, end: 20170408
  6. SAMTIREL [Suspect]
     Active Substance: ATOVAQUONE
     Dosage: 1500 MG, 1D
     Route: 048
     Dates: start: 20170515
  7. BENAMBAX [Suspect]
     Active Substance: PENTAMIDINE
     Dosage: UNK
     Route: 055
     Dates: start: 20170514, end: 20170514
  8. SAMTIREL [Suspect]
     Active Substance: ATOVAQUONE
     Indication: PROPHYLAXIS
     Dosage: 750 MG, BID
     Route: 048
     Dates: start: 20170412, end: 20170419
  9. SAMTIREL [Suspect]
     Active Substance: ATOVAQUONE
     Indication: PNEUMOCYSTIS JIROVECII PNEUMONIA
     Dosage: 750 MG, QD
     Route: 048
     Dates: start: 20170420, end: 20170502
  10. DESCOVY [Suspect]
     Active Substance: EMTRICITABINE\TENOFOVIR ALAFENAMIDE FUMARATE
     Indication: HIV INFECTION
     Dosage: 1 DF, QD
     Route: 048
     Dates: start: 20170425

REACTIONS (8)
  - Rash [Recovered/Resolved]
  - Pneumocystis jirovecii pneumonia [Recovered/Resolved]
  - Immune reconstitution inflammatory syndrome [Recovered/Resolved]
  - Dyspnoea [Unknown]
  - Condition aggravated [Recovered/Resolved]
  - Hyponatraemia [Unknown]
  - Altered state of consciousness [Recovered/Resolved]
  - Hypoglycaemia [Recovered/Resolved]

NARRATIVE: CASE EVENT DATE: 20170502
